FAERS Safety Report 19950101 (Version 1)
Quarter: 2021Q4

REPORT INFORMATION
  Report Type: Spontaneous
  Country: US (occurrence: US)
  Receive Date: 20211013
  Receipt Date: 20211013
  Transmission Date: 20220303
  Serious: Yes (Hospitalization, Other)
  Sender: FDA-Public Use
  Company Number: None

PATIENT
  Age: 39 Year
  Sex: Female
  Weight: 83.25 kg

DRUGS (5)
  1. REGEN-COV [Suspect]
     Active Substance: CASIRIVIMAB\IMDEVIMAB
     Indication: COVID-19
  2. KEPPRA [Concomitant]
     Active Substance: LEVETIRACETAM
  3. ATIVAN [Concomitant]
     Active Substance: LORAZEPAM
  4. AMPLAZTER [Concomitant]
  5. OCCLUDED CLOSURE DEVICE [Concomitant]

REACTIONS (5)
  - Supraventricular tachycardia [None]
  - Blindness transient [None]
  - Sensory loss [None]
  - Seizure [None]
  - Infusion related reaction [None]

NARRATIVE: CASE EVENT DATE: 20211012
